FAERS Safety Report 16979767 (Version 8)
Quarter: 2022Q3

REPORT INFORMATION
  Report Type: Report from Study
  Country: CA (occurrence: CA)
  Receive Date: 20191031
  Receipt Date: 20220707
  Transmission Date: 20221027
  Serious: Yes (Other)
  Sender: FDA-Public Use
  Company Number: CA-GLAXOSMITHKLINE-CA2019AMR195296

PATIENT

DRUGS (1)
  1. MEPOLIZUMAB [Suspect]
     Active Substance: MEPOLIZUMAB
     Indication: Asthma
     Dosage: 100 MG, Z (1 MONTHS)
     Route: 042
     Dates: start: 20161125

REACTIONS (4)
  - Immunisation reaction [Unknown]
  - Syncope [Unknown]
  - Bronchiectasis [Unknown]
  - General physical health deterioration [Unknown]
